FAERS Safety Report 10193405 (Version 1)
Quarter: 2014Q2

REPORT INFORMATION
  Report Type: Spontaneous
  Country: US (occurrence: US)
  Receive Date: 20140524
  Receipt Date: 20140524
  Transmission Date: 20141212
  Serious: No
  Sender: FDA-Public Use
  Company Number: US-SA-2013SA118213

PATIENT
  Age: 70 Year
  Sex: Female

DRUGS (6)
  1. LANTUS SOLOSTAR [Suspect]
     Indication: TYPE 2 DIABETES MELLITUS
     Dosage: DOSE:70 UNIT(S)
     Route: 051
     Dates: start: 20130917
  2. SOLOSTAR [Concomitant]
  3. VICTOZA [Concomitant]
  4. LISINOPRIL [Concomitant]
  5. PRAVASTATIN [Concomitant]
  6. FENOFIBRATE [Concomitant]

REACTIONS (4)
  - Cataract [Unknown]
  - Blood glucose increased [Unknown]
  - Glycosylated haemoglobin increased [Unknown]
  - Incorrect product storage [Unknown]
